FAERS Safety Report 16547637 (Version 2)
Quarter: 2019Q3

REPORT INFORMATION
  Report Type: Spontaneous
  Country: US (occurrence: US)
  Receive Date: 20190709
  Receipt Date: 20190709
  Transmission Date: 20191004
  Serious: No
  Sender: FDA-Public Use
  Company Number: US-ASTELLAS-2019US007350

PATIENT
  Age: 64 Year
  Sex: Male

DRUGS (7)
  1. MYRBETRIQ [Suspect]
     Active Substance: MIRABEGRON
     Route: 065
  2. MYRBETRIQ [Suspect]
     Active Substance: MIRABEGRON
     Indication: PRODUCT USED FOR UNKNOWN INDICATION
     Route: 065
  3. OXYBUTYNIN                         /00538902/ [Suspect]
     Active Substance: OXYBUTYNIN CHLORIDE
     Indication: PRODUCT USED FOR UNKNOWN INDICATION
     Dosage: UNK UNK, UNKNOWN FREQ.
     Route: 065
  4. MYRBETRIQ [Suspect]
     Active Substance: MIRABEGRON
     Route: 065
  5. MYRBETRIQ [Suspect]
     Active Substance: MIRABEGRON
     Route: 065
  6. MYRBETRIQ [Suspect]
     Active Substance: MIRABEGRON
     Indication: PRODUCT USED FOR UNKNOWN INDICATION
     Route: 065
  7. TROSPIUM [Suspect]
     Active Substance: TROSPIUM
     Indication: PRODUCT USED FOR UNKNOWN INDICATION
     Dosage: UNK UNK, UNKNOWN FREQ.
     Route: 065

REACTIONS (6)
  - Dry mouth [Unknown]
  - Nasopharyngitis [Unknown]
  - Arthralgia [Unknown]
  - Therapeutic product effect incomplete [Unknown]
  - Back pain [Unknown]
  - Hypersensitivity [Unknown]
